FAERS Safety Report 5254966-0 (Version None)
Quarter: 2007Q1

REPORT INFORMATION
  Report Type: 
  Country: None (occurrence: None)
  Receive Date: 20070305
  Receipt Date: 20070220
  Transmission Date: 20070707
  Serious: Yes (Other)
  Sender: FDA-Public Use
  Company Number: CH-AVENTIS-200711439GDDC

PATIENT
  Age: 61 Year
  Sex: Male

DRUGS (6)
  1. TAXOTERE [Suspect]
     Route: 042
  2. CISPLATIN [Suspect]
     Route: 042
  3. RADIATION THERAPY [Suspect]
  4. PANTOZOL                           /01263202/ [Concomitant]
     Route: 048
     Dates: start: 20060904
  5. CONCOR                             /00802602/ [Concomitant]
     Route: 048
     Dates: start: 20070131
  6. MARCUMAR [Concomitant]
     Route: 048
     Dates: start: 20070131

REACTIONS (1)
  - URINARY TRACT NEOPLASM [None]
